FAERS Safety Report 20685589 (Version 1)
Quarter: 2022Q2

REPORT INFORMATION
  Report Type: Report from Study
  Country: US (occurrence: US)
  Receive Date: 20220407
  Receipt Date: 20220407
  Transmission Date: 20220721
  Serious: Yes (Hospitalization, Other)
  Sender: FDA-Public Use
  Company Number: US-SHIRE-US201939150

PATIENT
  Age: 8 Year
  Sex: Male

DRUGS (7)
  1. IDURSULFASE [Suspect]
     Active Substance: IDURSULFASE
     Indication: Mucopolysaccharidosis II
     Dosage: 12 MILLIGRAM, 1/WEEK
     Route: 042
     Dates: start: 20191014
  2. IDURSULFASE [Suspect]
     Active Substance: IDURSULFASE
     Dosage: 11.8 MILLIGRAM, 1/WEEK
     Route: 042
     Dates: start: 20191015
  3. IDURSULFASE [Suspect]
     Active Substance: IDURSULFASE
     Dosage: 13.5 MILLIGRAM
     Route: 042
  4. ACRIVASTINE [Concomitant]
     Active Substance: ACRIVASTINE
     Indication: Product used for unknown indication
  5. CORTISONE [Concomitant]
     Active Substance: CORTISONE
     Indication: Product used for unknown indication
  6. DIPHENHYDRAMINE [Concomitant]
     Active Substance: DIPHENHYDRAMINE
     Indication: Product used for unknown indication
  7. SOLU-MEDROL [Concomitant]
     Active Substance: METHYLPREDNISOLONE SODIUM SUCCINATE
     Indication: Product used for unknown indication

REACTIONS (7)
  - Lip swelling [Recovered/Resolved]
  - Catheter site infection [Unknown]
  - Infusion related reaction [Unknown]
  - Condition aggravated [Unknown]
  - Headache [Recovered/Resolved]
  - Wheezing [Unknown]
  - Muscle swelling [Unknown]

NARRATIVE: CASE EVENT DATE: 20200117
